FAERS Safety Report 10211068 (Version 1)
Quarter: 2014Q2

REPORT INFORMATION
  Report Type: Spontaneous
  Country: US (occurrence: None)
  Receive Date: 20140530
  Receipt Date: 20140530
  Transmission Date: 20141212
  Serious: No
  Sender: FDA-Public Use
  Company Number: None

PATIENT
  Age: 58 Year
  Sex: Female

DRUGS (1)
  1. HUMIRA 40 MG [Suspect]
     Indication: RHEUMATOID ARTHRITIS
     Dosage: 40 MG, EVERY WEEK, SUB Q
     Route: 058
     Dates: start: 20140213

REACTIONS (3)
  - Nausea [None]
  - Swelling [None]
  - Fall [None]
